FAERS Safety Report 9444310 (Version 1)
Quarter: 2013Q3

REPORT INFORMATION
  Report Type: Spontaneous
  Country: US (occurrence: US)
  Receive Date: 20130807
  Receipt Date: 20130807
  Transmission Date: 20140515
  Serious: Yes (Hospitalization)
  Sender: FDA-Public Use
  Company Number: US-MYLANLABS-2013S1016784

PATIENT
  Age: 32 Year
  Sex: Male

DRUGS (2)
  1. METHADONE [Suspect]
     Indication: OVERDOSE
     Route: 065
  2. METHADONE [Suspect]
     Indication: PAIN
     Route: 065

REACTIONS (3)
  - Leukoencephalopathy [Recovered/Resolved with Sequelae]
  - Overdose [Recovered/Resolved]
  - Cognitive disorder [Not Recovered/Not Resolved]
